FAERS Safety Report 8581760-5 (Version None)
Quarter: 2012Q3

REPORT INFORMATION
  Report Type: 
  Country: None (occurrence: None)
  Receive Date: 20120809
  Receipt Date: 20120726
  Transmission Date: 20120928
  Serious: No
  Sender: FDA-Public Use
  Company Number: US-ASTRAZENECA-2012SE53265

PATIENT
  Sex: Male

DRUGS (1)
  1. ARIMIDEX [Suspect]
     Dosage: 1 MG, TWO TIMES A WEEK
     Route: 048

REACTIONS (2)
  - OFF LABEL USE [None]
  - HEARING IMPAIRED [None]
